FAERS Safety Report 13265456 (Version 3)
Quarter: 2017Q1

REPORT INFORMATION
  Report Type: Report from Study
  Country: FR (occurrence: FR)
  Receive Date: 20170223
  Receipt Date: 20170327
  Transmission Date: 20170428
  Serious: Yes (Life-Threatening, Hospitalization, Other)
  Sender: FDA-Public Use
  Company Number: FR-BRISTOL-MYERS SQUIBB COMPANY-BMS-2017-013044

PATIENT
  Age: 59 Year
  Sex: Male
  Weight: 74 kg

DRUGS (8)
  1. SOVALDI [Suspect]
     Active Substance: SOFOSBUVIR
     Indication: HEPATITIS C
     Dosage: 400 MG, QD
     Route: 065
     Dates: start: 20141020, end: 201504
  2. LASILIX                            /00032601/ [Concomitant]
     Active Substance: FUROSEMIDE
     Indication: POLYURIA
     Dosage: 10 MG, QD
     Route: 065
     Dates: start: 2009
  3. SMECTA [Concomitant]
     Active Substance: MONTMORILLONITE
     Indication: DIARRHOEA
     Dosage: UNK
     Route: 065
     Dates: start: 20141117
  4. RIBAVIRIN. [Suspect]
     Active Substance: RIBAVIRIN
     Indication: HEPATITIS C
     Dosage: 200 MG, QID
     Route: 065
     Dates: start: 20141020, end: 201504
  5. LASILIX                            /00032601/ [Concomitant]
     Active Substance: FUROSEMIDE
     Indication: PRODUCT USED FOR UNKNOWN INDICATION
     Dosage: 20 MG, QD
     Route: 065
     Dates: start: 2014
  6. MOTILIUM [Concomitant]
     Active Substance: DOMPERIDONE
     Indication: NAUSEA
     Dosage: UNK
     Route: 065
     Dates: start: 201501
  7. DACLATASVIR DIHYDROCHLORIDE [Suspect]
     Active Substance: DACLATASVIR DIHYDROCHLORIDE
     Indication: HEPATITIS C
     Dosage: 60 MG, QD
     Route: 065
     Dates: start: 20141020, end: 201504
  8. CARAFATE [Concomitant]
     Active Substance: SUCRALFATE
     Indication: OESOPHAGEAL VARICEAL LIGATION
     Dosage: 2 G, BID
     Route: 048
     Dates: start: 20160526, end: 20160604

REACTIONS (6)
  - Varices oesophageal [Recovering/Resolving]
  - Hepatocellular carcinoma [Unknown]
  - Hepatitis C [Unknown]
  - Portal hypertensive gastropathy [Recovering/Resolving]
  - Oesophageal variceal ligation [Unknown]
  - Therapeutic embolisation [Unknown]

NARRATIVE: CASE EVENT DATE: 20150109
